FAERS Safety Report 8432546 (Version 4)
Quarter: 2013Q2

REPORT INFORMATION
  Report Type: Spontaneous
  Country: DE (occurrence: DE)
  Receive Date: 20120229
  Receipt Date: 20130620
  Transmission Date: 20140414
  Serious: Yes (Other)
  Sender: FDA-Public Use
  Company Number: DE-JNJFOC-20120212764

PATIENT
  Sex: Male

DRUGS (3)
  1. REGAINE UNSPECIFIED [Suspect]
     Route: 061
  2. REGAINE UNSPECIFIED [Suspect]
     Indication: PRODUCT USED FOR UNKNOWN INDICATION
     Route: 061
  3. ROGAINE (MINOXIDIL) [Suspect]
     Indication: PRODUCT USED FOR UNKNOWN INDICATION
     Route: 061

REACTIONS (26)
  - Tinnitus [Unknown]
  - Asthma [Unknown]
  - Ear swelling [Unknown]
  - Alopecia [Not Recovered/Not Resolved]
  - Palpitations [Unknown]
  - Visual impairment [Unknown]
  - Eye inflammation [Unknown]
  - Epistaxis [Unknown]
  - Oral mucosal erythema [Unknown]
  - Oropharyngeal pain [Unknown]
  - Blood pressure abnormal [Unknown]
  - Pruritus generalised [Unknown]
  - Burning sensation [Unknown]
  - Generalised oedema [Not Recovered/Not Resolved]
  - Hair colour changes [Unknown]
  - Hair texture abnormal [Unknown]
  - Erythema [Unknown]
  - Skin exfoliation [Unknown]
  - Ocular hyperaemia [Unknown]
  - Eye swelling [Unknown]
  - Headache [Unknown]
  - Chills [Unknown]
  - Petechiae [Unknown]
  - Restlessness [Unknown]
  - Asthenia [Unknown]
  - Pain [Unknown]
